FAERS Safety Report 6779043-9 (Version None)
Quarter: 2010Q2

REPORT INFORMATION
  Report Type: 
  Country: None (occurrence: None)
  Receive Date: 20100618
  Receipt Date: 20100609
  Transmission Date: 20101027
  Serious: Yes (Hospitalization, Other)
  Sender: FDA-Public Use
  Company Number: US-JNJFOC-20100304723

PATIENT
  Age: 57 Year
  Sex: Female
  Weight: 51 kg

DRUGS (6)
  1. DOXORUBICIN HCL [Suspect]
     Indication: OVARIAN CANCER
     Dosage: OVER 1 HOUR ON DAY 1
     Route: 042
  2. DOXORUBICIN HCL [Suspect]
     Dosage: OVER 1 HOUR ON DAY 1
     Route: 042
  3. DOXORUBICIN HCL [Suspect]
     Dosage: OVER 1 HOUR ON DAY 1
     Route: 042
  4. DOXORUBICIN HCL [Suspect]
     Dosage: OVER 1 HOUR ON DAY 1
     Route: 042
  5. TAXOTERE [Suspect]
     Indication: DRUG USE FOR UNKNOWN INDICATION
     Dosage: OVER 1 HOUR ON DAYS 1, 8 AND 15
     Route: 065
  6. CLOTRIMAZOLE [Concomitant]
     Indication: ORAL CANDIDIASIS
     Route: 048

REACTIONS (6)
  - NEUTROPENIA [None]
  - ORAL CANDIDIASIS [None]
  - OVARIAN CANCER [None]
  - PYREXIA [None]
  - STOMATITIS [None]
  - SYNCOPE [None]
